FAERS Safety Report 9154668 (Version 2)
Quarter: 2013Q2

REPORT INFORMATION
  Report Type: Spontaneous
  Country: US (occurrence: US)
  Receive Date: 20130311
  Receipt Date: 20130419
  Transmission Date: 20140414
  Serious: No
  Sender: FDA-Public Use
  Company Number: US-PFIZER INC-2013082416

PATIENT
  Age: 58 Year
  Sex: Female
  Weight: 111 kg

DRUGS (4)
  1. PRISTIQ [Suspect]
     Indication: DEPRESSION
     Dosage: 50 MG, 1X/DAY
     Route: 048
     Dates: start: 20130226, end: 20130307
  2. LEVOXYL [Concomitant]
     Dosage: UNK
  3. ZOLPIDEM [Concomitant]
     Dosage: 10 MG, UNK
  4. MIRTAZAPINE [Concomitant]
     Dosage: 30 MG, UNK

REACTIONS (2)
  - Headache [Not Recovered/Not Resolved]
  - Migraine [Unknown]
